FAERS Safety Report 4941671-0 (Version None)
Quarter: 2006Q1

REPORT INFORMATION
  Report Type: 
  Country: None (occurrence: None)
  Receive Date: 20060313
  Receipt Date: 20060228
  Transmission Date: 20060701
  Serious: Yes (Hospitalization)
  Sender: FDA-Public Use
  Company Number: AU-ROCHE-438680

PATIENT
  Age: 56 Year
  Sex: Male

DRUGS (4)
  1. DACLIZUMAB [Suspect]
     Indication: DRUG USE FOR UNKNOWN INDICATION
     Route: 065
  2. CORTICOSTEROID NOS [Suspect]
     Indication: DRUG USE FOR UNKNOWN INDICATION
     Route: 065
  3. TACROLIMUS [Concomitant]
     Dosage: IN JULY 2005 (EST.) THE DOSE WAS INCREASED.
     Dates: end: 20050815
  4. RAPAMUNE [Concomitant]
     Dosage: BATCH: 2004P1448/1825/204.
     Route: 048
     Dates: start: 20050417, end: 20050709

REACTIONS (4)
  - CELLULITIS [None]
  - HUMAN POLYOMAVIRUS INFECTION [None]
  - OEDEMA PERIPHERAL [None]
  - SCEDOSPORIUM INFECTION [None]
